FAERS Safety Report 5921736-7 (Version None)
Quarter: 2008Q4

REPORT INFORMATION
  Report Type: 
  Country: None (occurrence: None)
  Receive Date: 20081016
  Receipt Date: 20081016
  Transmission Date: 20090506
  Serious: Yes (Hospitalization)
  Sender: FDA-Public Use
  Company Number: None

PATIENT
  Age: 89 Year
  Sex: Female

DRUGS (3)
  1. SOTALOL HCL [Suspect]
  2. WARFARIN SODIUM [Suspect]
  3. DYAZIDE [Suspect]

REACTIONS (11)
  - ALTERED STATE OF CONSCIOUSNESS [None]
  - BRADYCARDIA [None]
  - DYSPNOEA [None]
  - HYPERGLYCAEMIA [None]
  - HYPOXIA [None]
  - INTERNATIONAL NORMALISED RATIO INCREASED [None]
  - LEUKOCYTOSIS [None]
  - OVERDOSE [None]
  - RENAL FAILURE [None]
  - SYNCOPE [None]
  - TACHYPNOEA [None]
